FAERS Safety Report 21351454 (Version 1)
Quarter: 2022Q3

REPORT INFORMATION
  Report Type: Spontaneous
  Country: US (occurrence: US)
  Receive Date: 20220919
  Receipt Date: 20220919
  Transmission Date: 20221027
  Serious: No
  Sender: FDA-Public Use
  Company Number: US-SA-SAC20220915000073

PATIENT
  Age: 62 Year
  Sex: Female
  Weight: 98.4 kg

DRUGS (16)
  1. SOLIQUA 100/33 [Suspect]
     Active Substance: INSULIN GLARGINE\LIXISENATIDE
     Indication: Product used for unknown indication
     Dosage: 58 IU
  2. SOLIQUA 100/33 [Suspect]
     Active Substance: INSULIN GLARGINE\LIXISENATIDE
     Dosage: 48 IU
  3. MIFEPRISTONE [Suspect]
     Active Substance: MIFEPRISTONE
     Indication: Cushing^s syndrome
     Dosage: 300 MG QD
     Route: 048
     Dates: start: 20220727, end: 20220820
  4. MIFEPRISTONE [Suspect]
     Active Substance: MIFEPRISTONE
     Dosage: 300 MG QD
     Route: 048
     Dates: start: 20220821
  5. VITAMIN D NOS [Concomitant]
     Active Substance: VITAMIN D NOS
  6. ELIQUIS [Concomitant]
     Active Substance: APIXABAN
  7. FERROUS SULFATE [Concomitant]
     Active Substance: FERROUS SULFATE
  8. HUMALOG [Concomitant]
     Active Substance: INSULIN LISPRO
     Dates: end: 20220830
  9. LIPITOR [Concomitant]
     Active Substance: ATORVASTATIN CALCIUM
  10. KCL [Concomitant]
     Active Substance: POTASSIUM CHLORIDE
  11. PRILOSEC [Concomitant]
     Active Substance: OMEPRAZOLE MAGNESIUM
  12. SOTALOL [Concomitant]
     Active Substance: SOTALOL
  13. VALSARTAN [Concomitant]
     Active Substance: VALSARTAN
  14. HYDROCHLOROTHIAZIDE\VALSARTAN [Concomitant]
     Active Substance: HYDROCHLOROTHIAZIDE\VALSARTAN
  15. XANAX [Concomitant]
     Active Substance: ALPRAZOLAM
  16. XIGDUO XR [Concomitant]
     Active Substance: DAPAGLIFLOZIN PROPANEDIOL\METFORMIN HYDROCHLORIDE

REACTIONS (12)
  - Muscle tightness [Recovered/Resolved]
  - Palpitations [Unknown]
  - Pulse abnormal [Unknown]
  - Condition aggravated [Unknown]
  - Blood pressure decreased [Unknown]
  - Muscle spasms [Unknown]
  - Decreased appetite [Unknown]
  - Hypophagia [Unknown]
  - Fatigue [Not Recovered/Not Resolved]
  - Nausea [Not Recovered/Not Resolved]
  - Vomiting [Not Recovered/Not Resolved]
  - Intentional product use issue [Unknown]

NARRATIVE: CASE EVENT DATE: 20220801
